FAERS Safety Report 6499850-X (Version None)
Quarter: 2009Q4

REPORT INFORMATION
  Report Type: 
  Country: None (occurrence: None)
  Receive Date: 20091214
  Receipt Date: 20091214
  Transmission Date: 20100525
  Serious: Yes (Other)
  Sender: FDA-Public Use
  Company Number: None

PATIENT
  Sex: Female
  Weight: 67 kg

DRUGS (2)
  1. TRAZODONE HCL [Suspect]
     Dosage: 100MG QHS
  2. CELEXA [Suspect]
     Dosage: 20 MG/D

REACTIONS (3)
  - INCORRECT DOSE ADMINISTERED [None]
  - TORSADE DE POINTES [None]
  - VENTRICULAR TACHYCARDIA [None]
